FAERS Safety Report 10489281 (Version 4)
Quarter: 2014Q4

REPORT INFORMATION
  Report Type: Spontaneous
  Country: GB (occurrence: GB)
  Receive Date: 20141002
  Receipt Date: 20141114
  Transmission Date: 20150528
  Serious: Yes (Death)
  Sender: FDA-Public Use
  Company Number: GB-MERCK-1409GBR015202

PATIENT
  Age: 34 Year
  Sex: Male
  Weight: 60 kg

DRUGS (2)
  1. SITAGLIPTIN PHOSPHATE [Suspect]
     Active Substance: SITAGLIPTIN PHOSPHATE
     Indication: LATENT AUTOIMMUNE DIABETES IN ADULTS
     Dosage: 25 MG, UNK
     Route: 002
     Dates: start: 20140822
  2. FULTIUM D3 [Concomitant]
     Dosage: UNK

REACTIONS (2)
  - Cardiac arrest [Not Recovered/Not Resolved]
  - Sudden cardiac death [Fatal]
